FAERS Safety Report 25426497 (Version 2)
Quarter: 2025Q2

REPORT INFORMATION
  Report Type: Report from Study
  Country: GB (occurrence: GB)
  Receive Date: 20250612
  Receipt Date: 20250627
  Transmission Date: 20250717
  Serious: Yes (Hospitalization, Other)
  Sender: TAKEDA
  Company Number: GB-TAKEDA-2025TUS033648

PATIENT
  Sex: Male

DRUGS (4)
  1. TEDUGLUTIDE [Suspect]
     Active Substance: TEDUGLUTIDE
     Indication: Short-bowel syndrome
     Dosage: 1.7 MILLIGRAM, 3/WEEK
     Dates: start: 20250328
  2. TEDUGLUTIDE [Suspect]
     Active Substance: TEDUGLUTIDE
     Dosage: 1.7 MILLIGRAM, 3/WEEK
     Dates: end: 20250613
  3. TEDUGLUTIDE [Suspect]
     Active Substance: TEDUGLUTIDE
  4. TEDUGLUTIDE [Suspect]
     Active Substance: TEDUGLUTIDE

REACTIONS (10)
  - Vascular device infection [Recovered/Resolved]
  - Dyspnoea exertional [Unknown]
  - Diarrhoea [Not Recovered/Not Resolved]
  - Weight decreased [Not Recovered/Not Resolved]
  - Inappropriate schedule of product administration [Not Recovered/Not Resolved]
  - Needle issue [Unknown]
  - Therapeutic product effect decreased [Unknown]
  - Sleep disorder [Unknown]
  - Respiratory tract infection [Unknown]
  - Oedema peripheral [Unknown]
